FAERS Safety Report 13245854 (Version 10)
Quarter: 2017Q3

REPORT INFORMATION
  Report Type: Report from Study
  Country: US (occurrence: US)
  Receive Date: 20170217
  Receipt Date: 20170926
  Transmission Date: 20171127
  Serious: Yes (Hospitalization)
  Sender: FDA-Public Use
  Company Number: US-EISAI MEDICAL RESEARCH-EC-2017-023877

PATIENT
  Age: 61 Year
  Sex: Female
  Weight: 83 kg

DRUGS (4)
  1. LENVIMA [Suspect]
     Active Substance: LENVATINIB
     Route: 048
     Dates: start: 201703
  2. LENVIMA [Suspect]
     Active Substance: LENVATINIB
     Route: 048
     Dates: start: 2017, end: 2017
  3. HYDROCHLOROTHIAZIDE. [Concomitant]
     Active Substance: HYDROCHLOROTHIAZIDE
  4. LENVIMA [Suspect]
     Active Substance: LENVATINIB
     Indication: THYROID CANCER
     Route: 048
     Dates: start: 20161128, end: 20170204

REACTIONS (13)
  - Stomatitis [Recovering/Resolving]
  - Dizziness [Unknown]
  - Vision blurred [Unknown]
  - Hypertension [Not Recovered/Not Resolved]
  - Hypotension [Unknown]
  - Pain in extremity [Unknown]
  - Fungal infection [Unknown]
  - Orthostatic hypotension [Not Recovered/Not Resolved]
  - Abdominal discomfort [Unknown]
  - Oropharyngeal pain [Unknown]
  - Oral pain [Unknown]
  - Blood pressure fluctuation [Unknown]
  - Headache [Unknown]

NARRATIVE: CASE EVENT DATE: 2017
